FAERS Safety Report 11949276 (Version 6)
Quarter: 2016Q3

REPORT INFORMATION
  Report Type: Report from Study
  Country: GB (occurrence: GB)
  Receive Date: 20160125
  Receipt Date: 20160804
  Transmission Date: 20161109
  Serious: Yes (Death, Life-Threatening, Hospitalization, Other)
  Sender: FDA-Public Use
  Company Number: GB-BRISTOL-MYERS SQUIBB COMPANY-BMS-2016-002984

PATIENT
  Age: 72 Year
  Sex: Female
  Weight: 73.4 kg

DRUGS (1)
  1. NIVOLUMAB [Suspect]
     Active Substance: NIVOLUMAB
     Indication: NON-SMALL CELL LUNG CANCER
     Dosage: 220 MG, UNK
     Route: 042
     Dates: start: 20151217, end: 20151217

REACTIONS (4)
  - Acute kidney injury [Not Recovered/Not Resolved]
  - Syncope [Recovered/Resolved]
  - Malignant neoplasm progression [Fatal]
  - Hyponatraemia [Not Recovered/Not Resolved]

NARRATIVE: CASE EVENT DATE: 20151226
